FAERS Safety Report 5677631-4 (Version None)
Quarter: 2008Q1

REPORT INFORMATION
  Report Type: 
  Country: None (occurrence: None)
  Receive Date: 20080324
  Receipt Date: 20080311
  Transmission Date: 20080703
  Serious: Yes (Other)
  Sender: FDA-Public Use
  Company Number: SE-ELI_LILLY_AND_COMPANY-SE200801001499

PATIENT
  Sex: Female

DRUGS (2)
  1. CYMBALTA [Suspect]
     Indication: DEPRESSION
     Dosage: 60 MG, EACH MORNING
     Route: 048
     Dates: start: 20060314, end: 20071002
  2. CYMBALTA [Suspect]
     Dosage: 1 D/F, AT NIGHT
     Route: 048
     Dates: start: 20060314, end: 20071002

REACTIONS (4)
  - CARDIOMEGALY [None]
  - DIZZINESS [None]
  - HYPERTENSION [None]
  - SYNCOPE [None]
